FAERS Safety Report 9038276 (Version 1)
Quarter: 2013Q1

REPORT INFORMATION
  Report Type: Spontaneous
  Country: US (occurrence: US)
  Receive Date: 20130129
  Receipt Date: 20130129
  Transmission Date: 20140127
  Serious: No
  Sender: FDA-Public Use
  Company Number: US-009507513-1301USA013208

PATIENT
  Age: 8 Year
  Sex: Female

DRUGS (2)
  1. MIRALAX [Suspect]
     Indication: CONSTIPATION
     Dosage: 8.5 G, ONCE
     Dates: start: 20121108
  2. MIRALAX [Suspect]
     Dosage: 17 G, UNKNOWN

REACTIONS (3)
  - Abdominal pain upper [Unknown]
  - Discomfort [Unknown]
  - Drug administered to patient of inappropriate age [Unknown]
